FAERS Safety Report 18076710 (Version 1)
Quarter: 2020Q3

REPORT INFORMATION
  Report Type: Spontaneous
  Country: US (occurrence: US)
  Receive Date: 20200727
  Receipt Date: 20200727
  Transmission Date: 20201103
  Serious: Yes (Hospitalization, Other)
  Sender: FDA-Public Use
  Company Number: US-BAYER-2020-148569

PATIENT
  Sex: Male

DRUGS (1)
  1. VITRAKVI [Suspect]
     Active Substance: LAROTRECTINIB
     Indication: BRAIN NEOPLASM
     Dosage: UNK
     Dates: end: 20200609

REACTIONS (4)
  - Asthenia [None]
  - Lethargy [None]
  - Cardiac failure congestive [None]
  - Poisoning deliberate [None]

NARRATIVE: CASE EVENT DATE: 202005
